FAERS Safety Report 10508828 (Version 1)
Quarter: 2014Q4

REPORT INFORMATION
  Report Type: Spontaneous
  Country: US (occurrence: US)
  Receive Date: 20141009
  Receipt Date: 20141009
  Transmission Date: 20150528
  Serious: No
  Sender: FDA-Public Use
  Company Number: US-ELI_LILLY_AND_COMPANY-US201410003216

PATIENT
  Age: 10 Year
  Sex: Male

DRUGS (1)
  1. HUMATROPE [Suspect]
     Active Substance: SOMATROPIN
     Indication: PRODUCT USED FOR UNKNOWN INDICATION
     Dosage: UNK UNK, QD
     Route: 065
     Dates: start: 201409

REACTIONS (8)
  - Developmental delay [Unknown]
  - Growth hormone deficiency [Unknown]
  - Sleep disorder [Unknown]
  - Autism [Unknown]
  - Somnambulism [Unknown]
  - Hypopituitarism [Unknown]
  - Affect lability [Unknown]
  - Metabolic disorder [Unknown]
